FAERS Safety Report 15479380 (Version 2)
Quarter: 2018Q4

REPORT INFORMATION
  Report Type: Spontaneous
  Country: CZ (occurrence: CZ)
  Receive Date: 20181009
  Receipt Date: 20181022
  Transmission Date: 20190205
  Serious: Yes (Death, Other)
  Sender: FDA-Public Use
  Company Number: CZ-BAYER-2018-183688

PATIENT
  Sex: Male

DRUGS (4)
  1. STIVARGA [Suspect]
     Active Substance: REGORAFENIB
     Indication: COLORECTAL CANCER
     Dosage: 160 MG, QD FOR 21 DAYS ON 7 DAYS OFF
     Route: 048
     Dates: start: 20140623, end: 201409
  2. STIVARGA [Suspect]
     Active Substance: REGORAFENIB
     Indication: COLORECTAL CANCER
     Dosage: 120 MG, QD
     Route: 048
     Dates: start: 201409, end: 20150224
  3. LOPERAMIDE [Concomitant]
     Active Substance: LOPERAMIDE
  4. NINTEDANIB [Concomitant]
     Active Substance: NINTEDANIB
     Dosage: UNK
     Dates: start: 201504, end: 201505

REACTIONS (7)
  - Hepatic failure [Fatal]
  - Hypomagnesaemia [None]
  - Secondary hypertension [Recovered/Resolved]
  - Hepatic cancer [None]
  - Thrombocytopenia [None]
  - Hypokalaemia [None]
  - Diarrhoea [None]

NARRATIVE: CASE EVENT DATE: 2014
